FAERS Safety Report 7552837-8 (Version None)
Quarter: 2011Q2

REPORT INFORMATION
  Report Type: 
  Country: None (occurrence: None)
  Receive Date: 20110616
  Receipt Date: 20110614
  Transmission Date: 20111010
  Serious: Yes (Other)
  Sender: FDA-Public Use
  Company Number: AU-PFIZER INC-2011115628

PATIENT
  Age: 48 Year
  Sex: Female
  Weight: 71.6 kg

DRUGS (2)
  1. DESMOPRESSIN [Suspect]
     Indication: PROPHYLAXIS
     Dosage: 20 UG, 2X/DAY
     Dates: start: 20110526, end: 20110527
  2. CYKLOKAPRON [Suspect]
     Indication: PROPHYLAXIS
     Dosage: 3500 MG
     Route: 042
     Dates: start: 20110525, end: 20110527

REACTIONS (3)
  - ACCIDENTAL OVERDOSE [None]
  - DRUG ADMINISTRATION ERROR [None]
  - HYPONATRAEMIA [None]
